FAERS Safety Report 4477732-2 (Version None)
Quarter: 2004Q3

REPORT INFORMATION
  Report Type: 
  Country: None (occurrence: None)
  Receive Date: 20040923
  Receipt Date: 20040804
  Transmission Date: 20050211
  Serious: No
  Sender: FDA-Public Use
  Company Number: USA040874550

PATIENT
  Age: 58 Year
  Sex: Female
  Weight: 39 kg

DRUGS (4)
  1. FORTEO [Suspect]
     Indication: OSTEOPOROSIS
     Dosage: 20 UG/1 DAY
     Dates: start: 20040728
  2. VALIUM [Concomitant]
  3. LEXAPRO [Concomitant]
  4. ASACOL [Concomitant]

REACTIONS (1)
  - EYE DISORDER [None]
